FAERS Safety Report 10476097 (Version 8)
Quarter: 2015Q2

REPORT INFORMATION
  Report Type: Report from Study
  Country: AU (occurrence: AU)
  Receive Date: 20140925
  Receipt Date: 20150512
  Transmission Date: 20150821
  Serious: Yes (Death, Hospitalization)
  Sender: FDA-Public Use
  Company Number: AU-009507513-1407AUS010292

PATIENT
  Age: 76 Year
  Sex: Male
  Weight: 62.1 kg

DRUGS (15)
  1. CYANOCOBALAMIN. [Concomitant]
     Active Substance: CYANOCOBALAMIN
     Indication: ROUTINE HEALTH MAINTENANCE
     Dosage: 1000 MICROGRAM, PRN
     Route: 048
     Dates: start: 2011
  2. NIACINAMIDE [Concomitant]
     Active Substance: NIACINAMIDE
     Indication: ROUTINE HEALTH MAINTENANCE
     Dosage: 500 MG, PRN
     Route: 048
     Dates: start: 2011, end: 20140718
  3. CALCIUM (UNSPECIFIED) [Concomitant]
     Active Substance: CALCIUM
     Indication: ROUTINE HEALTH MAINTENANCE
     Dosage: 120 MG, PRN
     Route: 048
     Dates: start: 2011, end: 20140718
  4. UBIDECARENONE [Concomitant]
     Active Substance: UBIDECARENONE
     Indication: ROUTINE HEALTH MAINTENANCE
     Dosage: 600 MG, PRN
     Route: 048
     Dates: start: 2011
  5. OXYCONTIN [Concomitant]
     Active Substance: OXYCODONE HYDROCHLORIDE
     Indication: ADVERSE EVENT
     Dosage: 10 MG, Q12H
     Route: 048
     Dates: start: 20140707, end: 20140718
  6. ACETYLCYSTEINE. [Concomitant]
     Active Substance: ACETYLCYSTEINE
     Indication: ROUTINE HEALTH MAINTENANCE
     Dosage: 2400 MG, PRN
     Route: 048
     Dates: start: 2011, end: 20140718
  7. ACETAMINOPHEN. [Concomitant]
     Active Substance: ACETAMINOPHEN
     Indication: PAIN
     Dosage: 1 G, PRN
     Route: 048
     Dates: start: 201302, end: 20140718
  8. CLEXANE (ENOXAPARIN SODIUM) [Concomitant]
     Active Substance: ENOXAPARIN SODIUM
     Indication: PULMONARY EMBOLISM
     Dosage: 60 MG, BID
     Route: 058
     Dates: start: 20131005
  9. PEMBROLIZUMAB. [Suspect]
     Active Substance: PEMBROLIZUMAB
     Indication: NON-SMALL CELL LUNG CANCER
     Dosage: 2 MG/KG,  Q3W
     Route: 042
     Dates: start: 20140617, end: 20140708
  10. MAGNESIUM (UNSPECIFIED) [Concomitant]
     Active Substance: MAGNESIUM
     Indication: ROUTINE HEALTH MAINTENANCE
     Dosage: 500 MG, PRN
     Route: 048
     Dates: start: 2011, end: 20140718
  11. ASCORBIC ACID. [Concomitant]
     Active Substance: ASCORBIC ACID
     Indication: ROUTINE HEALTH MAINTENANCE
     Dosage: 10 G, PRN
     Route: 048
     Dates: start: 2011
  12. PRAMIN [Concomitant]
     Indication: ADVERSE EVENT
     Dosage: 10 MG, PRN
     Route: 048
     Dates: start: 20140617, end: 20140718
  13. FOLIC ACID. [Concomitant]
     Active Substance: FOLIC ACID
     Indication: ROUTINE HEALTH MAINTENANCE
     Dosage: 500 IU, PRN
     Route: 048
     Dates: start: 2011
  14. TENOFOVIR DISOPROXIL FUMARATE [Concomitant]
     Active Substance: TENOFOVIR DISOPROXIL FUMARATE
     Indication: PROPHYLAXIS
     Dosage: 300 MG, QD
     Route: 048
     Dates: start: 20140617, end: 20140718
  15. ENDONE [Concomitant]
     Active Substance: OXYCODONE HYDROCHLORIDE
     Indication: ADVERSE EVENT
     Dosage: 5 MG, PRN
     Route: 048
     Dates: start: 20140707, end: 20140718

REACTIONS (3)
  - Cardio-respiratory arrest [Fatal]
  - Lethargy [Unknown]
  - Lower respiratory tract infection [Not Recovered/Not Resolved]

NARRATIVE: CASE EVENT DATE: 20140716
